FAERS Safety Report 8890027 (Version 2)
Quarter: 2012Q4

REPORT INFORMATION
  Report Type: 
  Country: US (occurrence: None)
  Receive Date: 20121107
  Receipt Date: 20121214
  Transmission Date: 20130627
  Serious: Yes (Death, Hospitalization)
  Sender: FDA-Public Use
  Company Number: None

PATIENT
  Age: 62 Year
  Sex: Male
  Weight: 72.7 kg

DRUGS (2)
  1. STEROID MEDICATION [Suspect]
  2. UNSPECIFIED INGREDIENT [Suspect]

REACTIONS (10)
  - Cerebrovascular accident [None]
  - Product quality issue [None]
  - Asthenia [None]
  - Confusional state [None]
  - Nausea [None]
  - Pyrexia [None]
  - Lung infection [None]
  - Brain death [None]
  - Suspected transmission of an infectious agent via product [None]
  - Unresponsive to stimuli [None]
